FAERS Safety Report 15973815 (Version 2)
Quarter: 2019Q1

REPORT INFORMATION
  Report Type: Spontaneous
  Country: US (occurrence: US)
  Receive Date: 20190217
  Receipt Date: 20190225
  Transmission Date: 20190418
  Serious: Yes (Other)
  Sender: FDA-Public Use
  Company Number: US-ASTRAZENECA-2019SE09656

PATIENT

DRUGS (8)
  1. ASPIRINE [Concomitant]
     Active Substance: ASPIRIN
  2. ALBUTEROL. [Concomitant]
     Active Substance: ALBUTEROL
  3. BUMETANIDE. [Concomitant]
     Active Substance: BUMETANIDE
  4. PRAVASTATIN. [Concomitant]
     Active Substance: PRAVASTATIN
  5. LASIX [Concomitant]
     Active Substance: FUROSEMIDE
  6. PRILOSEC OTC [Suspect]
     Active Substance: OMEPRAZOLE MAGNESIUM
     Route: 048
     Dates: start: 20000101
  7. METOLAZONE. [Concomitant]
     Active Substance: METOLAZONE
  8. METOPROLOL. [Concomitant]
     Active Substance: METOPROLOL

REACTIONS (3)
  - End stage renal disease [Unknown]
  - Renal injury [Unknown]
  - Chronic kidney disease [Unknown]
